FAERS Safety Report 5144957-2 (Version None)
Quarter: 2006Q4

REPORT INFORMATION
  Report Type: 
  Country: None (occurrence: None)
  Receive Date: 20061107
  Receipt Date: 20061026
  Transmission Date: 20070319
  Serious: Yes (Hospitalization)
  Sender: FDA-Public Use
  Company Number: CN-AVENTIS-200621201GDDC

PATIENT
  Age: 69 Year
  Sex: Female
  Weight: 64 kg

DRUGS (3)
  1. LANTUS [Suspect]
     Indication: DIABETES MELLITUS
     Dosage: DOSE: 6 - 12
     Route: 058
     Dates: start: 20060603
  2. METFORMIN HCL [Concomitant]
     Indication: DIABETES MELLITUS
     Route: 048
     Dates: start: 19960101
  3. CHINESE MEDICINE [Concomitant]
     Indication: DIABETES MELLITUS
     Route: 048
     Dates: start: 19960101

REACTIONS (10)
  - CORONARY ARTERY DISEASE [None]
  - DIABETIC NEUROPATHY [None]
  - FACE OEDEMA [None]
  - GASTROINTESTINAL DISORDER [None]
  - HAEMODIALYSIS [None]
  - HYPERPARATHYROIDISM [None]
  - OEDEMA PERIPHERAL [None]
  - RENAL FAILURE [None]
  - RETINOPATHY [None]
  - VISUAL ACUITY REDUCED [None]
